FAERS Safety Report 12266183 (Version 1)
Quarter: 2016Q2

REPORT INFORMATION
  Report Type: Spontaneous
  Country: US (occurrence: None)
  Receive Date: 20160413
  Receipt Date: 20160413
  Transmission Date: 20160815
  Serious: Yes (Other)
  Sender: FDA-Public Use
  Company Number: None

PATIENT
  Age: 63 Year
  Sex: Female
  Weight: 63.05 kg

DRUGS (8)
  1. NATURE-THROID [Concomitant]
     Active Substance: THYROID, PORCINE
  2. CALCIUM CITRATE [Concomitant]
     Active Substance: CALCIUM CITRATE
  3. PROBIOTIC [Concomitant]
     Active Substance: PROBIOTICS NOS
  4. VITAMIN D3 [Concomitant]
     Active Substance: CHOLECALCIFEROL
  5. BIOTIN [Concomitant]
     Active Substance: BIOTIN
  6. MAGNESIUM ASPARTATE [Concomitant]
     Active Substance: MAGNESIUM ASPARTATE
  7. MELATONIN [Concomitant]
     Active Substance: MELATONIN
  8. GENERIC RECLAST1MG, 1 MG DR. REDDY [Suspect]
     Active Substance: ZOLEDRONIC ACID
     Indication: OSTEOPOROSIS
     Dosage: ONCE PER YEAR INTO A VEIN
     Route: 042
     Dates: start: 20160331, end: 20160331

REACTIONS (7)
  - Chills [None]
  - Pyrexia [None]
  - Influenza like illness [None]
  - Headache [None]
  - Oedema peripheral [None]
  - Weight bearing difficulty [None]
  - Arthralgia [None]

NARRATIVE: CASE EVENT DATE: 20160331
